FAERS Safety Report 20858840 (Version 4)
Quarter: 2022Q3

REPORT INFORMATION
  Report Type: Report from Study
  Country: PT (occurrence: PT)
  Receive Date: 20220522
  Receipt Date: 20220719
  Transmission Date: 20221027
  Serious: Yes (Hospitalization)
  Sender: FDA-Public Use
  Company Number: PT-ABBVIE-20K-130-3708837-00

PATIENT
  Age: 56 Year
  Sex: Male

DRUGS (13)
  1. CARBIDOPA\LEVODOPA [Suspect]
     Active Substance: CARBIDOPA\LEVODOPA
     Indication: Parkinson^s disease
     Dosage: MORNING 4CC(+ 5CC NJT);MAINTENAN:1.0CC/H ?20 MG + 5 MG
     Route: 050
     Dates: start: 20201210, end: 20201211
  2. CARBIDOPA\LEVODOPA [Suspect]
     Active Substance: CARBIDOPA\LEVODOPA
     Dosage: 20 MG + 5 MG
     Route: 050
     Dates: start: 202012, end: 202012
  3. CARBIDOPA\LEVODOPA [Suspect]
     Active Substance: CARBIDOPA\LEVODOPA
     Dosage: MORNING DOSE 7 CC;MAINTENANCE: 4.6CC/H ?20 MG + 5 MG
     Route: 050
     Dates: start: 20201225, end: 20201226
  4. CARBIDOPA\LEVODOPA [Suspect]
     Active Substance: CARBIDOPA\LEVODOPA
     Dosage: MORNING DOSE 7 CC; MAINTENANCE: 4.4CC/H?20 MG + 5 MG
     Route: 050
     Dates: start: 20201226
  5. CARBIDOPA\LEVODOPA [Suspect]
     Active Substance: CARBIDOPA\LEVODOPA
     Dosage: MORNING DOSE 6 CC; MAINTENANCE: 5.2CC/H?20 MG + 5 MG
     Route: 050
  6. CARBIDOPA\LEVODOPA [Suspect]
     Active Substance: CARBIDOPA\LEVODOPA
     Dosage: MORNING DOSE 9CC; MAINTENANCE: 6CC/H; EXTRA DOSE 5CC; BLOCKADE LEVEL LLO?20 MG + 5 MG
     Route: 050
     Dates: start: 202101, end: 2021
  7. CARBIDOPA\LEVODOPA [Suspect]
     Active Substance: CARBIDOPA\LEVODOPA
     Dosage: MORN:6CC;MAINT:5.8CC/H;EXTRA:5CC,20 MG+5 MG
     Route: 050
     Dates: start: 2021, end: 2022
  8. CARBIDOPA\LEVODOPA [Suspect]
     Active Substance: CARBIDOPA\LEVODOPA
     Dosage: MORN:5CC;MAINT:2CC;EXTRA:2CC, 20 MG + 5 MG
     Route: 050
     Dates: start: 20220714, end: 20220716
  9. ARTANE [Concomitant]
     Active Substance: TRIHEXYPHENIDYL HYDROCHLORIDE
     Indication: Product used for unknown indication
  10. TRAZODONE [Concomitant]
     Active Substance: TRAZODONE HYDROCHLORIDE
     Indication: Product used for unknown indication
  11. DOMPERIDONE [Concomitant]
     Active Substance: DOMPERIDONE
     Indication: Product used for unknown indication
  12. TIZANIDINE [Concomitant]
     Active Substance: TIZANIDINE
     Indication: Product used for unknown indication
  13. SINEMET [Concomitant]
     Active Substance: CARBIDOPA\LEVODOPA
     Indication: Product used for unknown indication
     Dosage: 25/100?1 WHEN WAKING UP + 1 WHEN GOING TO SLEEP
     Dates: start: 2022

REACTIONS (5)
  - Arthralgia [Unknown]
  - Movement disorder [Recovered/Resolved]
  - Mobility decreased [Recovered/Resolved]
  - Mobility decreased [Unknown]
  - Dystonia [Not Recovered/Not Resolved]

NARRATIVE: CASE EVENT DATE: 20200101
